FAERS Safety Report 17571104 (Version 1)
Quarter: 2020Q1

REPORT INFORMATION
  Report Type: Spontaneous
  Country: US (occurrence: US)
  Receive Date: 20200323
  Receipt Date: 20200323
  Transmission Date: 20200409
  Serious: No
  Sender: FDA-Public Use
  Company Number: US-TEVA-2020-US-1197764

PATIENT
  Age: 62 Year
  Sex: Female

DRUGS (2)
  1. CBD OIL [Concomitant]
     Active Substance: CANNABIDIOL\HERBALS
  2. AUSTEDO [Suspect]
     Active Substance: DEUTETRABENAZINE
     Indication: HUNTINGTON^S DISEASE
     Dosage: 45 MILLIGRAM DAILY; 24 MG IN MORNING AND 21 MG IN THE EVENING
     Route: 065

REACTIONS (1)
  - Drug ineffective [Unknown]
